FAERS Safety Report 8369854-0 (Version None)
Quarter: 2012Q2

REPORT INFORMATION
  Report Type: 
  Country: None (occurrence: None)
  Receive Date: 20120518
  Receipt Date: 20120515
  Transmission Date: 20120825
  Serious: Yes (Hospitalization, Other)
  Sender: FDA-Public Use
  Company Number: US-PFIZER INC-2012115857

PATIENT
  Sex: Female
  Weight: 90.249 kg

DRUGS (6)
  1. ATENOLOL [Concomitant]
     Indication: HYPERTENSION
     Dosage: 50 MG, DAILY
  2. CHANTIX [Suspect]
     Indication: SMOKING CESSATION THERAPY
     Dosage: 0.5 MG, DAILY
     Dates: start: 20090101
  3. CHANTIX [Suspect]
     Dosage: 0.5 MG, 2X/DAY
     Dates: start: 20110101
  4. LISINOPRIL [Concomitant]
     Dosage: UNK
  5. CHANTIX [Suspect]
     Dosage: 0.5 MG, DAILY
     Dates: start: 20110829, end: 20110101
  6. NORVASC [Concomitant]
     Indication: HYPERTENSION
     Dosage: 5 MG, DAILY

REACTIONS (5)
  - ASTHENIA [None]
  - RENAL FAILURE [None]
  - DYSPNOEA [None]
  - FATIGUE [None]
  - GLOMERULONEPHRITIS MINIMAL LESION [None]
